FAERS Safety Report 21342904 (Version 1)
Quarter: 2022Q3

REPORT INFORMATION
  Report Type: Spontaneous
  Country: FR (occurrence: FR)
  Receive Date: 20220916
  Receipt Date: 20220916
  Transmission Date: 20221027
  Serious: Yes (Death, Hospitalization, Other)
  Sender: FDA-Public Use
  Company Number: FR-JAZZ-2022-FR-021742

PATIENT

DRUGS (28)
  1. METRONIDAZOLE [Suspect]
     Active Substance: METRONIDAZOLE
     Indication: Product used for unknown indication
     Dosage: 1 DOSAGE FORM, TID
     Route: 065
     Dates: start: 20220620, end: 20220620
  2. FUROSEMIDE [Concomitant]
     Active Substance: FUROSEMIDE
     Indication: Product used for unknown indication
     Dosage: UNK, UNKNOWN FREQUENCY
     Route: 065
     Dates: start: 20220619, end: 20220620
  3. METHYLPREDNISOLONE [Concomitant]
     Active Substance: METHYLPREDNISOLONE
     Indication: Blood disorder
     Dosage: 70 MILLIGRAM, QD
     Route: 065
     Dates: start: 20220615, end: 202206
  4. METHYLPREDNISOLONE [Concomitant]
     Active Substance: METHYLPREDNISOLONE
     Dosage: UNK
     Route: 065
     Dates: start: 20220619, end: 20220620
  5. PANTOPRAZOLE [Concomitant]
     Active Substance: PANTOPRAZOLE
     Indication: Abdominal pain upper
     Dosage: 1 DOSAGE FORM, QD, AT NIGHT
     Route: 065
     Dates: start: 20220619, end: 20220620
  6. LINEZOLID [Concomitant]
     Active Substance: LINEZOLID
     Indication: Product used for unknown indication
     Dosage: 1 DOSAGE FORM, BID
     Route: 065
     Dates: start: 20220620, end: 20220620
  7. URSODIOL [Concomitant]
     Active Substance: URSODIOL
     Indication: Venoocclusive disease
     Dosage: 0.5 DOSAGE FORM, TID
     Route: 065
     Dates: start: 20220428
  8. NEFOPAM [Concomitant]
     Active Substance: NEFOPAM
     Indication: Pain
     Dosage: 60 MILLIGRAM, QD
     Route: 065
     Dates: start: 20220619, end: 20220620
  9. DOLIPRANE [Concomitant]
     Active Substance: ACETAMINOPHEN
     Indication: Pain
     Dosage: 2 DOSAGE FORM, QID
     Route: 065
     Dates: start: 20220428, end: 20220619
  10. METOCLOPRAMIDE [Concomitant]
     Active Substance: METOCLOPRAMIDE
     Indication: Nausea
     Dosage: 1 DOSAGE FORM, BID
     Route: 065
     Dates: start: 20220619, end: 20220620
  11. PREVYMIS [Concomitant]
     Active Substance: LETERMOVIR
     Indication: Infection prophylaxis
     Dosage: 1 DOSAGE FORM, QD
     Route: 065
     Dates: start: 20220619
  12. AMBISOME [Concomitant]
     Active Substance: AMPHOTERICIN B
     Indication: Fungal infection
     Dosage: 210 MILLIGRAM, QD
     Route: 065
     Dates: start: 20220619, end: 20220620
  13. PROPOFOL [Concomitant]
     Active Substance: PROPOFOL
     Indication: Product used for unknown indication
     Dosage: 20 MG/J
     Route: 065
     Dates: start: 20220620, end: 20220620
  14. PENTACARINAT [Concomitant]
     Active Substance: PENTAMIDINE ISETHIONATE
     Indication: Infection prophylaxis
     Dosage: ONCE PER MONTH
     Route: 065
     Dates: start: 20220619, end: 20220620
  15. NOREPINEPHRINE [Concomitant]
     Active Substance: NOREPINEPHRINE
     Indication: Hypertension
     Dosage: UNK
     Route: 065
     Dates: start: 20220619, end: 20220620
  16. MORPHINE [Concomitant]
     Active Substance: MORPHINE
     Indication: Pain
     Dosage: 10 MILLIGRAM, QD
     Route: 065
     Dates: start: 20220619
  17. PHLOROGLUCINOL [Concomitant]
     Active Substance: PHLOROGLUCINOL
     Indication: Pain
     Dosage: 1 DOSAGE FORM, TID
     Route: 065
     Dates: start: 20220619, end: 20220620
  18. CELLCEPT [Concomitant]
     Active Substance: MYCOPHENOLATE MOFETIL
     Indication: Prophylaxis against transplant rejection
     Dosage: BID, 0.5 UNIT
     Route: 065
     Dates: start: 20220616, end: 202206
  19. CELLCEPT [Concomitant]
     Active Substance: MYCOPHENOLATE MOFETIL
     Dosage: 1 DOSAGE FORM, BID
     Route: 065
     Dates: start: 20220619, end: 20220620
  20. NPLATE [Concomitant]
     Active Substance: ROMIPLOSTIM
     Indication: Immune thrombocytopenia
     Dosage: 70 MICROGRAM, QWK
     Route: 065
  21. TACROLIMUS [Concomitant]
     Active Substance: TACROLIMUS
     Indication: Prophylaxis against transplant rejection
     Dosage: 3 DOSAGE FORM, QD
     Route: 065
     Dates: start: 20220522, end: 2022
  22. TACROLIMUS [Concomitant]
     Active Substance: TACROLIMUS
     Dosage: 3 DOSAGE FORM, QD
     Route: 065
     Dates: start: 20220619, end: 20220620
  23. MIDAZOLAM [Concomitant]
     Active Substance: MIDAZOLAM
     Indication: Product used for unknown indication
     Dosage: 50 MG/J UNKNOWN FREQUENCY
     Route: 065
     Dates: start: 20220620, end: 20220620
  24. DEFITELIO [Concomitant]
     Active Substance: DEFIBROTIDE SODIUM
     Indication: Venoocclusive disease
     Dosage: 200 MG/2.5 ML, 450 MG, EVERY 6 HOURS
     Route: 065
     Dates: start: 20220615
  25. VALACYCLOVIR HYDROCHLORIDE [Concomitant]
     Active Substance: VALACYCLOVIR HYDROCHLORIDE
     Indication: Infection prophylaxis
     Dosage: UNK, UNKNOWN FREQUENCY
     Route: 065
     Dates: start: 20220619
  26. TRAMADOL HYDROCHLORIDE [Concomitant]
     Active Substance: TRAMADOL HYDROCHLORIDE
     Indication: Pain
     Dosage: 100 MILLIGRAM, QID, EVERY 6 HOURS
     Route: 065
     Dates: start: 20220518, end: 20220619
  27. SUFENTANIL [Concomitant]
     Active Substance: SUFENTANIL
     Indication: Product used for unknown indication
     Dosage: 250?G/J, UNKNOWN FREQUENCY
     Route: 065
     Dates: start: 20220620, end: 20220620
  28. CEFEPIME [Concomitant]
     Active Substance: CEFEPIME HYDROCHLORIDE
     Indication: Febrile bone marrow aplasia
     Dosage: 1 DOSAGE FORM, TID
     Route: 065
     Dates: start: 20220619, end: 20220620

REACTIONS (5)
  - Acute respiratory distress syndrome [Fatal]
  - Abdominal pain [Fatal]
  - Multiple organ dysfunction syndrome [Fatal]
  - Inappropriate schedule of product administration [Recovered/Resolved]
  - Overdose [Recovered/Resolved]

NARRATIVE: CASE EVENT DATE: 20220101
